FAERS Safety Report 14016893 (Version 2)
Quarter: 2017Q4

REPORT INFORMATION
  Report Type: Spontaneous
  Country: RU (occurrence: RU)
  Receive Date: 20170927
  Receipt Date: 20171004
  Transmission Date: 20180321
  Serious: Yes (Other)
  Sender: FDA-Public Use
  Company Number: RU-ASTRAZENECA-2017SE98314

PATIENT
  Age: 59 Year
  Sex: Male
  Weight: 105 kg

DRUGS (5)
  1. THROMBO ASS [Concomitant]
     Active Substance: ASPIRIN
  2. BISOPROLOL [Concomitant]
     Active Substance: BISOPROLOL
  3. NITROGLYCERIN. [Concomitant]
     Active Substance: NITROGLYCERIN
  4. BRILINTA [Suspect]
     Active Substance: TICAGRELOR
     Indication: MYOCARDIAL INFARCTION
     Route: 048
     Dates: start: 20170525
  5. ATORVASTATIN [Concomitant]
     Active Substance: ATORVASTATIN

REACTIONS (4)
  - Arthralgia [Not Recovered/Not Resolved]
  - Contusion [Not Recovered/Not Resolved]
  - Chest pain [Recovered/Resolved]
  - Peptic ulcer [Recovering/Resolving]

NARRATIVE: CASE EVENT DATE: 201708
